FAERS Safety Report 13903451 (Version 6)
Quarter: 2018Q1

REPORT INFORMATION
  Report Type: Spontaneous
  Country: US (occurrence: US)
  Receive Date: 20170824
  Receipt Date: 20180110
  Transmission Date: 20180508
  Serious: No
  Sender: FDA-Public Use
  Company Number: US-PFIZER INC-2017365252

PATIENT
  Age: 68 Year
  Sex: Female

DRUGS (2)
  1. SUTENT [Suspect]
     Active Substance: SUNITINIB MALATE
     Indication: RENAL NEOPLASM
     Dosage: 25 MG, CYCLIC (TAKE 1 CAPSULE BY MOUTH DAILY FOR 2 WEEKS ON AND 1 WEEK OFF)
     Route: 048
     Dates: start: 201707, end: 2017
  2. SUTENT [Suspect]
     Active Substance: SUNITINIB MALATE
     Dosage: 25 MG, CYCLIC (TAKE 1 CAPSULE BY MOUTH DAILY FOR 2 WEEKS ON AND 1 WEEK OFF)
     Route: 048

REACTIONS (10)
  - Palmar-plantar erythrodysaesthesia syndrome [Unknown]
  - Amnesia [Unknown]
  - Hepatic enzyme increased [Unknown]
  - Burning sensation [Unknown]
  - Neoplasm progression [Unknown]
  - Dyspepsia [Unknown]
  - Skin exfoliation [Unknown]
  - Stomatitis [Unknown]
  - Dyspnoea [Unknown]
  - Skin discolouration [Unknown]

NARRATIVE: CASE EVENT DATE: 2017
